FAERS Safety Report 6580115-2 (Version None)
Quarter: 2010Q1

REPORT INFORMATION
  Report Type: 
  Country: None (occurrence: None)
  Receive Date: 20100212
  Receipt Date: 20100201
  Transmission Date: 20100710
  Serious: Yes (Hospitalization, Other)
  Sender: FDA-Public Use
  Company Number: GB-PFIZER INC-2010012803

PATIENT
  Age: 51 Year
  Sex: Female

DRUGS (9)
  1. LYRICA [Suspect]
     Indication: BREAKTHROUGH PAIN
     Dosage: 400 MG, 3X/DAY
  2. LYRICA [Suspect]
     Dosage: 200 MG, 3X/DAY
     Dates: start: 20091101
  3. NEURONTIN [Suspect]
  4. BUSCOPAN [Concomitant]
     Dosage: 10 MG, 3X/DAY
  5. PAROXETINE [Concomitant]
     Dosage: 20 MG, 1X/DAY
  6. OXYNORM [Concomitant]
     Dosage: 20 ML, 5X A DAY
     Dates: start: 20091101
  7. TRAMADOL [Concomitant]
     Dosage: 100 MG, 5 X A DAY
  8. PARACETAMOL [Concomitant]
     Dosage: 1000 MG, 4X/DAY
  9. CREON [Concomitant]
     Dosage: 10000 UNK, 6 X A DAY

REACTIONS (7)
  - GAIT DISTURBANCE [None]
  - LOCAL SWELLING [None]
  - MUSCULAR WEAKNESS [None]
  - NEUROSURGERY [None]
  - OVERDOSE [None]
  - SOMNOLENCE [None]
  - SWELLING FACE [None]
